FAERS Safety Report 4638876-5 (Version None)
Quarter: 2005Q2

REPORT INFORMATION
  Report Type: 
  Country: None (occurrence: None)
  Receive Date: 20050419
  Receipt Date: 20050406
  Transmission Date: 20051028
  Serious: Yes (Hospitalization)
  Sender: FDA-Public Use
  Company Number: FR-JNJFOC-20050401778

PATIENT
  Age: 13 Year
  Sex: Female
  Weight: 60 kg

DRUGS (3)
  1. RISPERDAL [Suspect]
     Route: 049
     Dates: start: 20030101
  2. RISPERDAL [Suspect]
     Dosage: OVERDOSE DOSAGE
     Route: 049
     Dates: start: 20030101
  3. RISPERDAL [Suspect]
     Route: 049
     Dates: start: 20030101

REACTIONS (3)
  - CONFUSIONAL STATE [None]
  - MYDRIASIS [None]
  - OVERDOSE [None]
